APPROVED DRUG PRODUCT: PREDNISONE
Active Ingredient: PREDNISONE
Strength: 5MG/5ML
Dosage Form/Route: SOLUTION;ORAL
Application: A088703 | Product #001
Applicant: HIKMA PHARMACEUTICALS USA INC
Approved: Nov 8, 1984 | RLD: Yes | RS: Yes | Type: RX